FAERS Safety Report 5777366-3 (Version None)
Quarter: 2008Q2

REPORT INFORMATION
  Report Type: 
  Country: None (occurrence: None)
  Receive Date: 20080618
  Receipt Date: 20080616
  Transmission Date: 20081010
  Serious: Yes (Death)
  Sender: FDA-Public Use
  Company Number: PHEH2008US05421

PATIENT
  Age: 67 Year
  Sex: Female

DRUGS (1)
  1. DIOVAN [Suspect]
     Dosage: 320 MG, UNK
     Dates: start: 20060101

REACTIONS (3)
  - ACUTE HEPATIC FAILURE [None]
  - JAUNDICE [None]
  - YELLOW SKIN [None]
